FAERS Safety Report 5706671-1 (Version None)
Quarter: 2008Q2

REPORT INFORMATION
  Report Type: 
  Country: None (occurrence: None)
  Receive Date: 20080414
  Receipt Date: 20080414
  Transmission Date: 20081010
  Serious: Yes (Other)
  Sender: FDA-Public Use
  Company Number: None

PATIENT
  Age: 48 Year
  Sex: Female
  Weight: 65.318 kg

DRUGS (4)
  1. SPIRIVA [Suspect]
     Indication: CHRONIC OBSTRUCTIVE PULMONARY DISEASE
     Dosage: 1 INHALATION ONCE INHALED
     Route: 055
     Dates: start: 20080409
  2. SPIRIVA [Suspect]
     Indication: DYSPNOEA
     Dosage: 1 INHALATION ONCE INHALED
     Route: 055
     Dates: start: 20080409
  3. CLONAZEPAM [Concomitant]
  4. ALBUTEROL [Concomitant]

REACTIONS (1)
  - CONVULSION [None]
